FAERS Safety Report 25517290 (Version 2)
Quarter: 2025Q3

REPORT INFORMATION
  Report Type: Spontaneous
  Country: US (occurrence: US)
  Receive Date: 20250704
  Receipt Date: 20250816
  Transmission Date: 20251020
  Serious: No
  Sender: ALEXION PHARMACEUTICALS
  Company Number: US-AstraZeneca-CH-00903127A

PATIENT
  Sex: Male

DRUGS (1)
  1. BREZTRI [Suspect]
     Active Substance: BUDESONIDE\FORMOTEROL\GLYCOPYRROLATE
     Indication: Product used for unknown indication

REACTIONS (8)
  - Dyspnoea [Unknown]
  - Inappropriate schedule of product administration [Unknown]
  - Chest discomfort [Unknown]
  - Adverse drug reaction [Unknown]
  - Pain [Unknown]
  - Paraesthesia [Unknown]
  - Chest discomfort [Unknown]
  - Drug ineffective [Unknown]
